FAERS Safety Report 4602588-4 (Version None)
Quarter: 2005Q1

REPORT INFORMATION
  Report Type: 
  Country: None (occurrence: None)
  Receive Date: 20050309
  Receipt Date: 20050303
  Transmission Date: 20050727
  Serious: Yes (Other)
  Sender: FDA-Public Use
  Company Number: 200511763US

PATIENT
  Sex: Male
  Weight: 105 kg

DRUGS (1)
  1. LANTUS [Suspect]
     Indication: DIABETES MELLITUS
     Route: 058
     Dates: start: 20020401

REACTIONS (4)
  - ASTHENIA [None]
  - DIABETIC RETINOPATHY [None]
  - DIZZINESS POSTURAL [None]
  - MACULAR OEDEMA [None]
